FAERS Safety Report 20077607 (Version 1)
Quarter: 2021Q4

REPORT INFORMATION
  Report Type: Spontaneous
  Country: DE (occurrence: DE)
  Receive Date: 20211116
  Receipt Date: 20211116
  Transmission Date: 20220303
  Serious: Yes (Hospitalization)
  Sender: FDA-Public Use
  Company Number: DE-ADRED-06992-01

PATIENT
  Age: 46 Year
  Sex: Female

DRUGS (3)
  1. PREDNISOLONE [Suspect]
     Active Substance: PREDNISOLONE
     Indication: Product used for unknown indication
     Dosage: 100 MG, EINMALIG, TABLETTEN
     Route: 048
  2. NITRENDIPINE [Concomitant]
     Active Substance: NITRENDIPINE
     Dosage: TABLETTEN
     Route: 048
  3. CANDESARTAN [Concomitant]
     Active Substance: CANDESARTAN
     Dosage: 8 MG, 1-0-1-0, TABLETTEN
     Route: 048

REACTIONS (2)
  - Tachycardia [Unknown]
  - Panic reaction [Unknown]

NARRATIVE: CASE EVENT DATE: 20210619
